FAERS Safety Report 21976748 (Version 1)
Quarter: 2023Q1

REPORT INFORMATION
  Report Type: Spontaneous
  Country: DE (occurrence: DE)
  Receive Date: 20230210
  Receipt Date: 20230210
  Transmission Date: 20230417
  Serious: No
  Sender: FDA-Public Use
  Company Number: None

PATIENT
  Sex: Male
  Weight: 76 kg

DRUGS (1)
  1. EZETIMIBE [Suspect]
     Active Substance: EZETIMIBE
     Indication: Coronary artery disease
     Dosage: 10 MILLIGRAM, QD (EVERY1 DAY)
     Route: 048
     Dates: start: 20220420, end: 20220707

REACTIONS (3)
  - Back pain [Recovered/Resolved]
  - Mobility decreased [Recovered/Resolved]
  - Myalgia [Recovered/Resolved]
